FAERS Safety Report 19058118 (Version 1)
Quarter: 2021Q1

REPORT INFORMATION
  Report Type: Report from Study
  Country: CH (occurrence: CH)
  Receive Date: 20210324
  Receipt Date: 20210324
  Transmission Date: 20210420
  Serious: Yes (Other)
  Sender: FDA-Public Use
  Company Number: CH-SEATTLE GENETICS-2021SGN01578

PATIENT
  Age: 77 Year
  Sex: Female

DRUGS (1)
  1. BRENTUXIMAB VEDOTIN?MPI [Suspect]
     Active Substance: BRENTUXIMAB VEDOTIN
     Indication: PERIPHERAL T-CELL LYMPHOMA UNSPECIFIED
     Dosage: UNK
     Route: 042
     Dates: start: 202002

REACTIONS (1)
  - Peripheral T-cell lymphoma unspecified [Unknown]
